FAERS Safety Report 14648575 (Version 1)
Quarter: 2018Q1

REPORT INFORMATION
  Report Type: Spontaneous
  Country: US (occurrence: US)
  Receive Date: 20180315
  Receipt Date: 20180315
  Transmission Date: 20180509
  Serious: Yes (Hospitalization)
  Sender: FDA-Public Use
  Company Number: None

PATIENT
  Age: 47 Year
  Sex: Female

DRUGS (10)
  1. SYNTHROID [Concomitant]
     Active Substance: LEVOTHYROXINE SODIUM
  2. CYCLOBENZAPR [Concomitant]
     Active Substance: CYCLOBENZAPRINE
  3. WAFARIN [Concomitant]
     Active Substance: WARFARIN
  4. TRAMADOL. [Concomitant]
     Active Substance: TRAMADOL
  5. PROPO N/APAP [Concomitant]
  6. LYRICA [Concomitant]
     Active Substance: PREGABALIN
  7. GILENYA [Suspect]
     Active Substance: FINGOLIMOD HYDROCHLORIDE
     Indication: MULTIPLE SCLEROSIS
     Dosage: ?          OTHER FREQUENCY:QD;?
     Route: 048
     Dates: start: 20150904
  8. AMPYRA [Concomitant]
     Active Substance: DALFAMPRIDINE
  9. COUMADIN [Concomitant]
     Active Substance: WARFARIN SODIUM
  10. HYDROCO/APAP [Concomitant]
     Active Substance: ACETAMINOPHEN\HYDROCODONE

REACTIONS (5)
  - Drug dose omission [None]
  - Overdose [None]
  - Fall [None]
  - Bladder disorder [None]
  - Depression [None]

NARRATIVE: CASE EVENT DATE: 20180219
